FAERS Safety Report 8834502 (Version 1)
Quarter: 2012Q4

REPORT INFORMATION
  Report Type: 
  Country: US (occurrence: US)
  Receive Date: 20121010
  Receipt Date: 20121010
  Transmission Date: 20130627
  Serious: Yes (Other)
  Sender: FDA-Public Use
  Company Number: US-ASTRAZENECA-2012SE75918

PATIENT
  Age: 43 Year
  Sex: Male

DRUGS (2)
  1. NEXIUM [Suspect]
     Route: 048
  2. PRILOSEC OTC [Suspect]
     Route: 048

REACTIONS (5)
  - Lower limb fracture [Unknown]
  - Dyspepsia [Unknown]
  - Insomnia [Unknown]
  - Drug effect decreased [Unknown]
  - Intentional drug misuse [Unknown]
